FAERS Safety Report 20447871 (Version 1)
Quarter: 2022Q1

REPORT INFORMATION
  Report Type: Spontaneous
  Country: FR (occurrence: FR)
  Receive Date: 20220209
  Receipt Date: 20220209
  Transmission Date: 20220423
  Serious: Yes (Hospitalization, Other)
  Sender: FDA-Public Use
  Company Number: None

PATIENT
  Age: 46 Year
  Sex: Female
  Weight: 64 kg

DRUGS (2)
  1. AMOXICILLIN [Suspect]
     Active Substance: AMOXICILLIN
     Indication: Otitis media acute
     Dosage: 1GM
     Route: 048
     Dates: start: 202107, end: 202107
  2. COMIRNATY [Suspect]
     Active Substance: TOZINAMERAN
     Indication: COVID-19 immunisation
     Dosage: D2,COMIRNATY, DISPERSION TO BE DILUTED FOR SOLUTION FOR INJECTION. MRNA VACCINE (MODIFIED NUCLEOSIDE
     Route: 030
     Dates: start: 20210626, end: 20210626

REACTIONS (5)
  - Pancreatitis acute [Recovered/Resolved]
  - Persecutory delusion [Recovered/Resolved]
  - Asthenia [Recovering/Resolving]
  - Hypersensitivity [Recovered/Resolved]
  - Otitis media acute [Recovered/Resolved]

NARRATIVE: CASE EVENT DATE: 20210626
